FAERS Safety Report 24641389 (Version 1)
Quarter: 2024Q4

REPORT INFORMATION
  Report Type: Report from Study
  Country: US (occurrence: US)
  Receive Date: 20241120
  Receipt Date: 20241120
  Transmission Date: 20250114
  Serious: Yes (Other)
  Sender: ABBVIE
  Company Number: US-ABBVIE-6011069

PATIENT
  Sex: Female

DRUGS (1)
  1. BOTOX [Suspect]
     Active Substance: ONABOTULINUMTOXINA
     Indication: Product used for unknown indication
     Dosage: TIME INTERVAL: AS NECESSARY
     Route: 065

REACTIONS (6)
  - Loss of consciousness [Unknown]
  - Intracranial aneurysm [Unknown]
  - Headache [Unknown]
  - Depression [Unknown]
  - Paraesthesia [Unknown]
  - Burning sensation [Unknown]
